FAERS Safety Report 5659668-4 (Version None)
Quarter: 2008Q1

REPORT INFORMATION
  Report Type: 
  Country: None (occurrence: None)
  Receive Date: 20080311
  Receipt Date: 20080306
  Transmission Date: 20080703
  Serious: Yes (Other)
  Sender: FDA-Public Use
  Company Number: US-JNJFOC-20080301885

PATIENT
  Age: 13 Year
  Sex: Male
  Weight: 61.24 kg

DRUGS (1)
  1. CONCERTA [Suspect]
     Indication: LEARNING DISABILITY
     Route: 048

REACTIONS (3)
  - IMPULSE-CONTROL DISORDER [None]
  - THERAPEUTIC RESPONSE DECREASED [None]
  - WEIGHT INCREASED [None]
